FAERS Safety Report 7347765 (Version 2)
Quarter: 2013Q4

REPORT INFORMATION
  Report Type: Report from Study
  Country: US (occurrence: US)
  Receive Date: 20100407
  Receipt Date: 20131218
  Transmission Date: 20140711
  Serious: Yes (Hospitalization, Other)
  Sender: FDA-Public Use
  Company Number: US-ROCHE-610816

PATIENT
  Age: 31 Year
  Sex: Female
  Weight: 65.5 kg

DRUGS (16)
  1. BEVACIZUMAB [Suspect]
     Indication: HER-2 POSITIVE BREAST CANCER
     Dosage: DOSE REPORTED AS 15 MG/KG, STUDY DRUG HELD.
     Route: 042
     Dates: start: 20081121, end: 20090212
  2. TRASTUZUMAB [Suspect]
     Indication: HER-2 POSITIVE BREAST CANCER
     Dosage: DOSE: 6 MG/KG, DOSE FORM REPORTED AS VIALS, DATE OF LAST DOSE PRIOR TO SAE: 5 MAR 2009
     Route: 042
  3. COUMADIN [Suspect]
     Indication: PRODUCT USED FOR UNKNOWN INDICATION
     Route: 065
  4. DOCETAXEL [Suspect]
     Indication: HER-2 POSITIVE BREAST CANCER
     Dosage: DOSE: 60 MG/ME2; DOSE FORM: VIALS; LAST DAOSE PRIOR TO SAE: 5 MAR 2009.
     Route: 042
     Dates: start: 20081120
  5. CARBOPLATIN [Suspect]
     Indication: HER-2 POSITIVE BREAST CANCER
     Dosage: DOSE: 5 AUC; DOSE FORM: VIALS; DATE OF LAST DOSE PRIOR TO SAE: 5 MAR 2009.
     Route: 042
     Dates: start: 20081121
  6. TYLENOL PM [Concomitant]
  7. ROBITUSSIN PRODUCT NOS [Concomitant]
     Dosage: DRUG REPORTED AS ROBITUSSIN (COUGH GEL).
     Route: 048
  8. PROMETHAZINE VC WITH CODEINE [Concomitant]
     Dosage: DOSE REPORTED AS I TSP. DRUG NAME REPORTED AS PROMETHAZINE-CODEINE SYRUP.
     Route: 065
  9. COMPAZINE [Concomitant]
  10. ATIVAN [Concomitant]
     Dosage: IN CASE 609918: DOSE REPORTED AS 4 MG.
     Route: 065
  11. IMODIUM [Concomitant]
     Route: 065
  12. ONDANSETRON [Concomitant]
     Dosage: DRUG NAME REPORTED AS ONDANSETRON PO.
     Route: 048
  13. LOPERAMIDE [Concomitant]
     Route: 065
  14. VENTOLIN [Concomitant]
     Route: 048
  15. VICODIN [Concomitant]
  16. DECADRON [Concomitant]

REACTIONS (4)
  - Thrombosis [Recovered/Resolved]
  - Local swelling [Recovered/Resolved]
  - Wound dehiscence [Recovered/Resolved]
  - Neck pain [Recovered/Resolved]
